FAERS Safety Report 18399182 (Version 1)
Quarter: 2020Q4

REPORT INFORMATION
  Report Type: Spontaneous
  Country: US (occurrence: US)
  Receive Date: 20201019
  Receipt Date: 20201019
  Transmission Date: 20210114
  Serious: No
  Sender: FDA-Public Use
  Company Number: US-009507513-2010USA003154

PATIENT
  Age: 15 Year
  Sex: Male

DRUGS (1)
  1. PREGNYL [Suspect]
     Active Substance: CHORIOGONADOTROPIN ALFA
     Indication: DELAYED PUBERTY
     Dosage: 1000 IU THREE TIMES PER WEEK
     Route: 058

REACTIONS (1)
  - Incorrect route of product administration [Unknown]
